FAERS Safety Report 6529174-3 (Version None)
Quarter: 2010Q1

REPORT INFORMATION
  Report Type: 
  Country: None (occurrence: None)
  Receive Date: 20100107
  Receipt Date: 20091230
  Transmission Date: 20100710
  Serious: Yes (Hospitalization)
  Sender: FDA-Public Use
  Company Number: US-ELI_LILLY_AND_COMPANY-US200912006386

PATIENT
  Age: 58 Year
  Sex: Female
  Weight: 107 kg

DRUGS (4)
  1. GEMCITABINE HCL [Suspect]
     Indication: BREAST CANCER
     Dosage: 1000 MG/M2, OTHER
     Route: 042
     Dates: start: 20091207
  2. PACLITAXEL, ALBUMIN-BOUND [Suspect]
     Indication: BREAST CANCER
     Dosage: 125 MG/M2, OTHER
     Route: 042
     Dates: start: 20091207
  3. BEVACIZUMAB [Suspect]
     Indication: BREAST CANCER
     Dosage: 15 MG/KG, OTHER
     Route: 042
     Dates: start: 20091207
  4. AZITHROMYCIN [Concomitant]
     Dosage: UNK, UNK
     Dates: start: 20091220, end: 20091222

REACTIONS (2)
  - NEUTROPHIL COUNT DECREASED [None]
  - PHARYNGITIS [None]
